FAERS Safety Report 16164300 (Version 1)
Quarter: 2019Q2

REPORT INFORMATION
  Report Type: Spontaneous
  Country: AT (occurrence: AT)
  Receive Date: 20190405
  Receipt Date: 20190405
  Transmission Date: 20190711
  Serious: Yes (Death, Hospitalization, Other)
  Sender: FDA-Public Use
  Company Number: AT-JNJFOC-20190138295

PATIENT
  Age: 85 Year
  Sex: Male

DRUGS (2)
  1. XARELTO [Suspect]
     Active Substance: RIVAROXABAN
     Indication: ATRIAL FIBRILLATION
     Route: 048
  2. THROMBO ASS [Concomitant]
     Active Substance: ASPIRIN
     Route: 065

REACTIONS (4)
  - Cerebral ventricular rupture [Fatal]
  - Urinary tract infection [Unknown]
  - Basal ganglia haemorrhage [Fatal]
  - Pneumonia [Unknown]

NARRATIVE: CASE EVENT DATE: 201812
